FAERS Safety Report 11322317 (Version 1)
Quarter: 2015Q3

REPORT INFORMATION
  Report Type: Spontaneous
  Country: GB (occurrence: None)
  Receive Date: 20150728
  Receipt Date: 20150728
  Transmission Date: 20151125
  Serious: Yes (Hospitalization)
  Sender: FDA-Public Use
  Company Number: NSR_02158_2015

PATIENT
  Age: 18 Year
  Sex: Male

DRUGS (3)
  1. CODEINE (CODEINE) [Suspect]
     Active Substance: CODEINE
     Indication: PAIN
     Dosage: (30 MG QID, DAY 1 OF HOSPITALIZATION)
  2. TRAMADOL (TRAMADOL) [Suspect]
     Active Substance: TRAMADOL
     Indication: PAIN
     Dosage: (100 MG, IN DIVIDED DOSES THOUGHOUT THE DAY, DAY 2 OF HOSPITALIZATION)
  3. MORPHINE (MORPHINE) [Suspect]
     Active Substance: MORPHINE
     Indication: PAIN
     Dosage: (60 MG, ONCE, DAY 2 OF HOSPITALIZATION ORAL)
     Route: 048

REACTIONS (1)
  - Adrenal insufficiency [None]
